FAERS Safety Report 6081516-1 (Version None)
Quarter: 2009Q1

REPORT INFORMATION
  Report Type: 
  Country: None (occurrence: None)
  Receive Date: 20090213
  Receipt Date: 20090129
  Transmission Date: 20090719
  Serious: Yes (Death)
  Sender: FDA-Public Use
  Company Number: 114635

PATIENT
  Age: 52 Year
  Sex: Male
  Weight: 77.1115 kg

DRUGS (1)
  1. IBUPROFEN TABLETS [Suspect]
     Indication: MUSCULOSKELETAL PAIN
     Dosage: 2 TABLETS ONCE ORAL
     Route: 048
     Dates: start: 20090111, end: 20090111

REACTIONS (3)
  - ERYTHEMA [None]
  - MYOCARDIAL INFARCTION [None]
  - VOMITING [None]
